FAERS Safety Report 19415282 (Version 1)
Quarter: 2021Q2

REPORT INFORMATION
  Report Type: Spontaneous
  Country: CA (occurrence: CA)
  Receive Date: 20210615
  Receipt Date: 20210615
  Transmission Date: 20210717
  Serious: Yes (Hospitalization)
  Sender: FDA-Public Use
  Company Number: CA-SAMSUNG BIOEPIS-SB-2021-14182

PATIENT
  Age: 23 Year
  Sex: Male
  Weight: 72 kg

DRUGS (1)
  1. INFLIXIMAB [Suspect]
     Active Substance: INFLIXIMAB
     Indication: CROHN^S DISEASE
     Route: 042

REACTIONS (8)
  - Asthenia [Unknown]
  - Crohn^s disease [Unknown]
  - Off label use [Unknown]
  - Blood iron decreased [Unknown]
  - Decreased appetite [Unknown]
  - Inappropriate schedule of product administration [Unknown]
  - Chills [Unknown]
  - Weight fluctuation [Unknown]
